FAERS Safety Report 5508827-X (Version None)
Quarter: 2007Q4

REPORT INFORMATION
  Report Type: 
  Country: None (occurrence: None)
  Receive Date: 20071105
  Receipt Date: 20071105
  Transmission Date: 20080405
  Serious: Yes (Other)
  Sender: FDA-Public Use
  Company Number: None

PATIENT
  Age: 47 Year
  Sex: Female
  Weight: 77.1115 kg

DRUGS (2)
  1. OMNISCAN [Suspect]
     Route: 042
  2. DAVOL HERNIA MESH 4X6 AND 8X10 PIECES DAVOL [Suspect]

REACTIONS (6)
  - ARTHRALGIA [None]
  - INADEQUATE ANALGESIA [None]
  - MALAISE [None]
  - PAIN IN EXTREMITY [None]
  - RENAL FAILURE [None]
  - SKIN DISCOLOURATION [None]
